FAERS Safety Report 4514729-8 (Version None)
Quarter: 2004Q4

REPORT INFORMATION
  Report Type: 
  Country: None (occurrence: None)
  Receive Date: 20041124
  Receipt Date: 20041124
  Transmission Date: 20050328
  Serious: Yes (Hospitalization)
  Sender: FDA-Public Use
  Company Number: None

PATIENT
  Age: 24 Year
  Sex: Male
  Weight: 62.61 kg

DRUGS (1)
  1. IMURAN [Suspect]
     Dosage: 100MG  QD  ORAL
     Route: 048

REACTIONS (2)
  - ANAEMIA [None]
  - NEUTROPENIA [None]
